FAERS Safety Report 18684027 (Version 2)
Quarter: 2021Q1

REPORT INFORMATION
  Report Type: Spontaneous
  Country: US (occurrence: US)
  Receive Date: 20201230
  Receipt Date: 20210203
  Transmission Date: 20210419
  Serious: Yes (Other)
  Sender: FDA-Public Use
  Company Number: US-ASTRAZENECA-2020SF73407

PATIENT
  Age: 27579 Day
  Sex: Female
  Weight: 50.8 kg

DRUGS (2)
  1. LYNPARZA [Suspect]
     Active Substance: OLAPARIB
     Indication: GASTROINTESTINAL CARCINOMA
     Route: 048
     Dates: start: 20201123
  2. LYNPARZA [Suspect]
     Active Substance: OLAPARIB
     Indication: GASTROINTESTINAL CARCINOMA
     Route: 048
     Dates: start: 20201020

REACTIONS (3)
  - Recurrent cancer [Unknown]
  - Carbohydrate antigen 19-9 increased [Unknown]
  - Product use issue [Recovered/Resolved]

NARRATIVE: CASE EVENT DATE: 20201204
